FAERS Safety Report 14685158 (Version 1)
Quarter: 2018Q1

REPORT INFORMATION
  Report Type: Spontaneous
  Country: GB (occurrence: GB)
  Receive Date: 20180327
  Receipt Date: 20180327
  Transmission Date: 20180509
  Serious: Yes (Life-Threatening, Other)
  Sender: FDA-Public Use
  Company Number: GB-TEVA-2018-GB-874755

PATIENT
  Age: 23 Year
  Sex: Male

DRUGS (1)
  1. HALOPERIDOL. [Suspect]
     Active Substance: HALOPERIDOL
     Indication: SEDATIVE THERAPY
     Dosage: 2.5MG - 5MG
     Route: 030

REACTIONS (5)
  - Neuroleptic malignant syndrome [Recovered/Resolved with Sequelae]
  - Blood test abnormal [Unknown]
  - Blood pressure increased [Unknown]
  - Autonomic nervous system imbalance [Unknown]
  - Heart rate increased [Unknown]
